FAERS Safety Report 5169248-5 (Version None)
Quarter: 2006Q4

REPORT INFORMATION
  Report Type: 
  Country: None (occurrence: None)
  Receive Date: 20061201
  Receipt Date: 20061121
  Transmission Date: 20070319
  Serious: Yes (Hospitalization)
  Sender: FDA-Public Use
  Company Number: 2006134262

PATIENT
  Age: 39 Year
  Sex: Female
  Weight: 93.2 kg

DRUGS (8)
  1. SUTENT [Suspect]
     Indication: METASTATIC RENAL CELL CARCINOMA
     Dosage: 50 MG 50 MG, QD:  EVERYDAY), ORAL
     Route: 048
     Dates: start: 20060209
  2. ENALAPRIL MALEATE [Concomitant]
  3. ACETAMINOPHEN [Concomitant]
  4. METFORMIN HCL [Concomitant]
  5. GLIMEPIRIDE [Concomitant]
  6. CORTISONE ACETATE [Concomitant]
  7. MORPHINE [Concomitant]
  8. DEXTROMETHORPHAN HYDROBROMIDE [Concomitant]

REACTIONS (5)
  - ANAEMIA [None]
  - BLOOD DISORDER [None]
  - INFECTION [None]
  - PLEURAL EFFUSION [None]
  - STAPHYLOCOCCAL INFECTION [None]
